FAERS Safety Report 9914385 (Version 1)
Quarter: 2014Q1

REPORT INFORMATION
  Report Type: Spontaneous
  Country: US (occurrence: US)
  Receive Date: 20140220
  Receipt Date: 20140220
  Transmission Date: 20141002
  Serious: No
  Sender: FDA-Public Use
  Company Number: US-GILEAD-2011-0043340

PATIENT
  Sex: Male

DRUGS (3)
  1. ATRIPLA [Suspect]
     Indication: HIV INFECTION
  2. ATRIPLA [Suspect]
  3. ATRIPLA [Suspect]

REACTIONS (1)
  - Drug screen false positive [Unknown]
